FAERS Safety Report 9185334 (Version 1)
Quarter: 2013Q1

REPORT INFORMATION
  Report Type: Spontaneous
  Country: US (occurrence: None)
  Receive Date: 20130325
  Receipt Date: 20130325
  Transmission Date: 20140127
  Serious: Yes (Life-Threatening, Hospitalization)
  Sender: FDA-Public Use
  Company Number: None

PATIENT
  Age: 54 Year
  Sex: Female
  Weight: 91 kg

DRUGS (20)
  1. FENTANYL [Suspect]
     Indication: ANALGESIC THERAPY
     Dosage: INFUSION
     Route: 042
     Dates: start: 20130212, end: 20130213
  2. APAP [Concomitant]
  3. ACETAZOLAMIDE [Concomitant]
  4. ACYCLOVIR [Concomitant]
  5. ENOXAPARIN [Concomitant]
  6. ETOMIDATE [Concomitant]
  7. FENTANYL [Concomitant]
  8. FUROSEMIDE [Concomitant]
  9. IMI/CILA [Concomitant]
  10. DUONEB [Concomitant]
  11. KETOROLAC [Concomitant]
  12. LINEZOLID [Concomitant]
  13. METOPROLOL [Concomitant]
  14. METRONIDAZOLE [Concomitant]
  15. MIDAZOLAM [Concomitant]
  16. PANTOPRAZOLE [Concomitant]
  17. PIP/TAZO [Concomitant]
  18. KCL [Concomitant]
  19. VANCOMYCIN [Concomitant]
  20. MIDAZOLAM [Suspect]
     Dosage: INFUSION
     Route: 042
     Dates: start: 20130212, end: 20130214

REACTIONS (6)
  - Hyperpyrexia [None]
  - Product contamination [None]
  - Upper gastrointestinal haemorrhage [None]
  - Hypotension [None]
  - Tachycardia [None]
  - Pneumonia [None]
